FAERS Safety Report 9694420 (Version 1)
Quarter: 2013Q4

REPORT INFORMATION
  Report Type: Spontaneous
  Country: US (occurrence: US)
  Receive Date: 20131118
  Receipt Date: 20131118
  Transmission Date: 20140711
  Serious: Yes (Hospitalization)
  Sender: FDA-Public Use
  Company Number: US-BAXTER-2013BAX044855

PATIENT
  Sex: Female

DRUGS (2)
  1. DIANEAL LOW CALCIUM [Suspect]
     Indication: PERITONEAL DIALYSIS
     Route: 033
     Dates: start: 201306, end: 20131016
  2. DIANEAL LOW CALCIUM [Suspect]
     Route: 033
     Dates: start: 20131018

REACTIONS (4)
  - Umbilical hernia [Recovered/Resolved]
  - Swelling [Not Recovered/Not Resolved]
  - Muscular weakness [Recovered/Resolved]
  - Fluid overload [Not Recovered/Not Resolved]
